FAERS Safety Report 6976138-1 (Version None)
Quarter: 2010Q3

REPORT INFORMATION
  Report Type: 
  Country: None (occurrence: None)
  Receive Date: 20100910
  Receipt Date: 20100903
  Transmission Date: 20110219
  Serious: Yes (Other)
  Sender: FDA-Public Use
  Company Number: US-NOVOPROD-300870

PATIENT
  Sex: Female
  Weight: 81.633 kg

DRUGS (15)
  1. LEVEMIR [Suspect]
     Indication: TYPE 2 DIABETES MELLITUS
     Dosage: UNK
     Route: 058
     Dates: start: 20090801, end: 20090921
  2. VAGIFEM [Concomitant]
     Dosage: 25 UG, BIW
  3. METFORMIN [Concomitant]
     Indication: TYPE 2 DIABETES MELLITUS
     Dosage: 1000 MG, BID
     Route: 048
  4. GLIMEPIRIDE [Concomitant]
     Indication: TYPE 2 DIABETES MELLITUS
     Dosage: 8 MG, QD
     Route: 048
  5. JANUVIA [Concomitant]
     Indication: TYPE 2 DIABETES MELLITUS
     Dosage: 100 MG, QD
     Route: 048
  6. SYNTHROID [Concomitant]
     Indication: THYROID DISORDER
     Dosage: .075 MG, QD
     Route: 048
  7. SIMVASTATIN [Concomitant]
     Dosage: 20 MG, QD
  8. VITAMIN A [Concomitant]
     Dosage: 100000 IU, WEEKLY
  9. ASPIRIN [Concomitant]
     Dosage: 81 MG, QD
  10. CELEBREX [Concomitant]
     Dosage: 200 MG, BID
  11. ALTACE [Concomitant]
     Dosage: 5 MG, QD
  12. ADVAIR DISKUS 100/50 [Concomitant]
     Dosage: 1 PUFF, BID
  13. ALBUTEROL [Concomitant]
     Dosage: 90 UG, QID
     Route: 055
  14. CITRACAL [Concomitant]
     Dosage: 200 MG, QD
  15. LEVAQUIN [Concomitant]
     Dosage: UNK

REACTIONS (4)
  - BLOOD GLUCOSE INCREASED [None]
  - DERMATITIS INFECTED [None]
  - PRURITUS GENERALISED [None]
  - RASH GENERALISED [None]
